FAERS Safety Report 19624101 (Version 1)
Quarter: 2021Q3

REPORT INFORMATION
  Report Type: Spontaneous
  Country: DE (occurrence: DE)
  Receive Date: 20210729
  Receipt Date: 20210729
  Transmission Date: 20211014
  Serious: Yes (Hospitalization)
  Sender: FDA-Public Use
  Company Number: DE-PBT-000474

PATIENT
  Age: 68 Year

DRUGS (13)
  1. OBINUTUZUMAB. [Suspect]
     Active Substance: OBINUTUZUMAB
     Indication: FOLLICULAR LYMPHOMA
     Dosage: ON DAY DAYS 1, 8 AND 15 OF CYCLE 1 AND DAY 1 OF CYCLE 2?CYCLE 6
     Route: 065
     Dates: start: 2017
  2. TACROLIMUS. [Suspect]
     Active Substance: TACROLIMUS
     Indication: IMMUNOSUPPRESSANT DRUG THERAPY
     Dosage: 1 MILLIGRAM DAILY; 4?6 UG/L
     Route: 048
  3. PREDNISOLONE. [Suspect]
     Active Substance: PREDNISOLONE
     Indication: PRODUCT USED FOR UNKNOWN INDICATION
     Dosage: 100 MILLIGRAM DAILY
  4. RITUXIMAB. [Concomitant]
     Active Substance: RITUXIMAB
     Indication: FOLLICULAR LYMPHOMA
     Route: 065
  5. CICLOSPORIN [Suspect]
     Active Substance: CYCLOSPORINE
     Indication: IMMUNOSUPPRESSANT DRUG THERAPY
     Route: 065
  6. POLATUZUMAB VEDOTIN. [Suspect]
     Active Substance: POLATUZUMAB VEDOTIN
     Indication: FOLLICULAR LYMPHOMA
     Dosage: ON DAY 1 OF CYCLES 1?6
     Route: 065
     Dates: start: 2017
  7. ANAKINRA [Suspect]
     Active Substance: ANAKINRA
     Indication: IMMUNOSUPPRESSANT DRUG THERAPY
     Dosage: 100 MILLIGRAM DAILY
     Route: 058
  8. ATEZOLIZUMAB. [Suspect]
     Active Substance: ATEZOLIZUMAB
     Indication: FOLLICULAR LYMPHOMA
     Dosage: ON DAY 1 OF CYCLE 2 TO CYCLE 6
     Route: 065
     Dates: start: 2017
  9. VENETOCLAX. [Concomitant]
     Active Substance: VENETOCLAX
     Indication: FOLLICULAR LYMPHOMA
     Route: 065
     Dates: start: 2016
  10. PREDNISOLONE. [Suspect]
     Active Substance: PREDNISOLONE
     Indication: IMMUNOSUPPRESSANT DRUG THERAPY
     Dosage: 10 MILLIGRAM DAILY; DAY 77
     Route: 042
  11. PREDNISOLONE. [Suspect]
     Active Substance: PREDNISOLONE
     Indication: PRODUCT USED FOR UNKNOWN INDICATION
     Route: 048
  12. INFLIXIMAB [Suspect]
     Active Substance: INFLIXIMAB
     Indication: IMMUNOSUPPRESSANT DRUG THERAPY
     Route: 042
  13. BENDAMUSTINE HYDROCHLORIDE. [Suspect]
     Active Substance: BENDAMUSTINE HYDROCHLORIDE
     Indication: FOLLICULAR LYMPHOMA
     Route: 065
     Dates: start: 2013

REACTIONS (9)
  - Viral infection [Recovered/Resolved]
  - Stomatitis [Unknown]
  - Dry eye [Unknown]
  - Oral fungal infection [Recovered/Resolved]
  - Dermatitis [Unknown]
  - Rebound effect [Unknown]
  - Bacteraemia [Recovered/Resolved]
  - Erysipelas [Unknown]
  - Bronchopulmonary aspergillosis [Recovered/Resolved]
